FAERS Safety Report 8115516-4 (Version None)
Quarter: 2012Q1

REPORT INFORMATION
  Report Type: 
  Country: None (occurrence: None)
  Receive Date: 20120201
  Receipt Date: 20120120
  Transmission Date: 20120608
  Serious: Yes (Death)
  Sender: FDA-Public Use
  Company Number: UTC-014846

PATIENT
  Sex: Female
  Weight: 62.2 kg

DRUGS (2)
  1. COUMADIN [Concomitant]
  2. TYVASO [Suspect]
     Indication: COR PULMONALE CHRONIC
     Dosage: INHALATION
     Route: 055

REACTIONS (1)
  - DEATH [None]
